FAERS Safety Report 25183668 (Version 1)
Quarter: 2025Q2

REPORT INFORMATION
  Report Type: Spontaneous
  Country: US (occurrence: None)
  Receive Date: 20250409
  Receipt Date: 20250409
  Transmission Date: 20250717
  Serious: Yes (Life-Threatening)
  Sender: FDA-CTU
  Company Number: None

PATIENT
  Age: 33 Year
  Sex: Male
  Weight: 75 kg

DRUGS (1)
  1. SUCCINYLCHOLINE CHLORIDE [Suspect]
     Active Substance: SUCCINYLCHOLINE CHLORIDE
     Indication: Oesophagogastroduodenoscopy
     Route: 042
     Dates: start: 20250325, end: 20250325

REACTIONS (4)
  - Hyperthermia malignant [None]
  - Back pain [None]
  - Pain in extremity [None]
  - Hyperhidrosis [None]

NARRATIVE: CASE EVENT DATE: 20250325
